FAERS Safety Report 21420343 (Version 1)
Quarter: 2022Q4

REPORT INFORMATION
  Report Type: Spontaneous
  Country: EG (occurrence: EG)
  Receive Date: 20221007
  Receipt Date: 20221007
  Transmission Date: 20230112
  Serious: Yes (Hospitalization, Other)
  Sender: FDA-Public Use
  Company Number: EG-NOVOPROD-964593

PATIENT
  Sex: Male

DRUGS (7)
  1. NAPIZOLE [OMEPRAZOLE SODIUM] [Concomitant]
     Indication: Prophylaxis
     Dosage: 1 TABLET BEFORE LUNCH ( STARTED FROM 10 YEARS )
     Route: 048
  2. TORSEMIDE [Concomitant]
     Active Substance: TORSEMIDE
     Indication: Hypertension
     Dosage: 1 TABLET AFTER LUNCH ( STARTED FROM 10 YEARS )
     Route: 048
  3. BENFOTIAMINE\CYANOCOBALAMIN\PYRIDOXINE HYDROCHLORIDE [Concomitant]
     Active Substance: BENFOTIAMINE\CYANOCOBALAMIN\PYRIDOXINE HYDROCHLORIDE
     Indication: Neuropathy peripheral
     Dosage: 1 TABLET BEFORE SLEEPING ( STARTED FROM 10 YEARS )
     Route: 048
  4. INSULIN HUMAN [Suspect]
     Active Substance: INSULIN HUMAN
     Indication: Type 1 diabetes mellitus
     Dosage: UNK
     Route: 058
  5. METHOTREXATE [Concomitant]
     Active Substance: METHOTREXATE
     Indication: Rheumatoid arthritis
     Dosage: 6 TABLETS EVERY FRIDAY ( STARTED FROM 7 YEARS )
     Route: 048
  6. JUSPRIN [Concomitant]
     Indication: Anticoagulant therapy
     Dosage: 1 TABLET AFTER BREAKFAST ( STARTED FROM 10-15 YEARS )
     Route: 048
  7. ATORVASTATIN [Concomitant]
     Active Substance: ATORVASTATIN
     Indication: Blood cholesterol abnormal
     Dosage: STARTED FROM 10 YEARS THE DOSE WILL BE TAKEN IN THE FU
     Route: 048

REACTIONS (2)
  - Joint arthroplasty [Not Recovered/Not Resolved]
  - Anaemia [Not Recovered/Not Resolved]
